FAERS Safety Report 4429313-4 (Version None)
Quarter: 2004Q3

REPORT INFORMATION
  Report Type: 
  Country: None (occurrence: None)
  Receive Date: 20040816
  Receipt Date: 20040802
  Transmission Date: 20050211
  Serious: Yes (Death, Hospitalization)
  Sender: FDA-Public Use
  Company Number: F01200401264

PATIENT
  Age: 75 Year
  Sex: Male

DRUGS (10)
  1. (OXALIPLATIN) -SOLUTION- 85MG/M2 [Suspect]
     Indication: COLORECTAL CANCER
     Dosage: 85 MG/M2 Q2W, 2 HOURS, INTRAVENOUS NOS
     Route: 042
     Dates: start: 20040510, end: 20040510
  2. FLUOROURACIL [Suspect]
     Dosage: 500 MG/M2 BOLUS ON D1, D8 AND D15, Q4W, INTRAVENOUS BOLUS, A FEW MINS
     Route: 040
     Dates: start: 20040510, end: 20040510
  3. LEUCOVORIN CALCIUM [Suspect]
     Dosage: 20 MG/M2 ON D1, D8 AND D15, Q4W, INTRAVENOUS BOLUS, A FEW MINS
     Route: 040
     Dates: start: 20040510, end: 20040510
  4. AVASTIN [Suspect]
     Dosage: 5 MG/KG OVER 30-90 MINUTES IV INFUSION ON DAY 1, 15, Q4W, INTRAVENOUS NOS, 1 HOUR 30 MINS
     Route: 042
     Dates: start: 20040510, end: 20040510
  5. BENAZEPRIL HCL [Concomitant]
  6. ATENOLOL [Concomitant]
  7. BUSPIRONE [Concomitant]
  8. LORAZEPAM [Concomitant]
  9. NORVASC [Concomitant]
  10. REMERON [Concomitant]

REACTIONS (14)
  - ASCITES [None]
  - DUODENAL ULCER PERFORATION [None]
  - GASTROINTESTINAL DISORDER [None]
  - HIATUS HERNIA [None]
  - INFLAMMATION [None]
  - INTESTINAL PERFORATION [None]
  - OESOPHAGEAL STENOSIS [None]
  - OESOPHAGEAL ULCER [None]
  - PERITONITIS [None]
  - PNEUMOPERITONEUM [None]
  - POST PROCEDURAL COMPLICATION [None]
  - REFLUX OESOPHAGITIS [None]
  - RESPIRATORY FAILURE [None]
  - SEPSIS [None]
